FAERS Safety Report 6314383-9 (Version None)
Quarter: 2009Q3

REPORT INFORMATION
  Report Type: 
  Country: None (occurrence: None)
  Receive Date: 20090817
  Receipt Date: 20090817
  Transmission Date: 20100115
  Serious: Yes (Hospitalization)
  Sender: FDA-Public Use
  Company Number: None

PATIENT
  Age: 51 Year
  Sex: Male
  Weight: 111.1 kg

DRUGS (57)
  1. TAXOTERE [Suspect]
     Indication: NON-SMALL CELL LUNG CANCER
     Dosage: UNKNOWN UNKNOWN IV BOLUS
     Route: 040
     Dates: start: 20090409, end: 20090409
  2. VANCOMYCIN [Concomitant]
  3. CEFTAZIDIME [Concomitant]
  4. FLAGYLL [Concomitant]
  5. DIFLUCAN [Concomitant]
  6. DAPTOMYCIN [Concomitant]
  7. MERREM [Concomitant]
  8. GANCICLOVIR [Concomitant]
  9. ACYCLOVIR [Concomitant]
  10. ERAXIS [Concomitant]
  11. ZYVOX [Concomitant]
  12. ZOSYN [Concomitant]
  13. COLISTIN SULFATE [Concomitant]
  14. POLYMYXIN [Concomitant]
  15. INVIRASE [Concomitant]
  16. NORVIR [Concomitant]
  17. EPZICOM [Concomitant]
  18. TRUVADA [Concomitant]
  19. NEOSYNEPHRINE DRIP [Concomitant]
  20. NEOSYNEPHRINE DRIP DOUBLE CONC. [Concomitant]
  21. NEUPOGEN [Concomitant]
  22. FENTANYL TRANSDERMAL SYSTEM [Concomitant]
  23. MORPHINE [Concomitant]
  24. NS [Concomitant]
  25. K/MG/PHOS PROTOCOLS [Concomitant]
  26. DUONEB [Concomitant]
  27. SIMVASTATIN [Concomitant]
  28. ADVAIR HFA [Concomitant]
  29. ELAVIL [Concomitant]
  30. PREVACID [Concomitant]
  31. ALLEGRA [Concomitant]
  32. PROTONIX [Concomitant]
  33. MAGIC MOUTHWASH [Concomitant]
  34. LIDOCAINE HCL VISCOUS [Concomitant]
  35. LASIX [Concomitant]
  36. ALBUMIN (HUMAN) [Concomitant]
  37. ATIVAN [Concomitant]
  38. BACTROBAN [Concomitant]
  39. LIBRIUM [Concomitant]
  40. TYLENOL (CAPLET) [Concomitant]
  41. BENADRYL [Concomitant]
  42. HYDROCORTISONE [Concomitant]
  43. ENSURE [Concomitant]
  44. KENALOG IN ORABASE [Concomitant]
  45. PHENERGAN [Concomitant]
  46. CARAFATE [Concomitant]
  47. ZOFRAN [Concomitant]
  48. PROCRIT [Concomitant]
  49. SOLU-MEDROL [Concomitant]
  50. SODIUM BICARBONATE IN PLASTIC CONTAINER [Concomitant]
  51. DIPRIVAN [Concomitant]
  52. XENODERM [Concomitant]
  53. XOPENEX/ATROVENT/PULMOCORT NEB [Concomitant]
  54. DEXTROSE 5% [Concomitant]
  55. DECADRON [Concomitant]
  56. LACRILUBE [Concomitant]
  57. TPN WITHOUT LIPIDS [Concomitant]

REACTIONS (25)
  - ABDOMINAL PAIN [None]
  - ACIDOSIS [None]
  - ASTHENIA [None]
  - BLOOD PRESSURE ABNORMAL [None]
  - DECREASED APPETITE [None]
  - DIARRHOEA [None]
  - DYSPNOEA [None]
  - HAEMOGLOBIN DECREASED [None]
  - INSOMNIA [None]
  - MOUTH ULCERATION [None]
  - NAUSEA [None]
  - NEUTROPENIA [None]
  - NEUTROPHIL COUNT DECREASED [None]
  - PANCYTOPENIA [None]
  - PSEUDOMONAS INFECTION [None]
  - PULSE ABSENT [None]
  - PYREXIA [None]
  - RASH ERYTHEMATOUS [None]
  - SEPSIS SYNDROME [None]
  - SHOCK [None]
  - SKIN EXFOLIATION [None]
  - STEVENS-JOHNSON SYNDROME [None]
  - UNRESPONSIVE TO STIMULI [None]
  - VOMITING [None]
  - WHITE BLOOD CELL COUNT DECREASED [None]
